FAERS Safety Report 14940335 (Version 1)
Quarter: 2018Q2

REPORT INFORMATION
  Report Type: Report from Study
  Country: US (occurrence: US)
  Receive Date: 20180525
  Receipt Date: 20180525
  Transmission Date: 20180711
  Serious: Yes (Other)
  Sender: FDA-Public Use
  Company Number: US-AMGEN-USASL2018070231

PATIENT
  Sex: Female

DRUGS (1)
  1. ENBREL [Suspect]
     Active Substance: ETANERCEPT
     Indication: RHEUMATOID ARTHRITIS
     Dosage: 100 MG, TWICE A MONTH
     Route: 065

REACTIONS (4)
  - Off label use [Unknown]
  - Herpes zoster [Unknown]
  - Sinusitis [Unknown]
  - Cellulitis [Unknown]
